FAERS Safety Report 4647686-4 (Version None)
Quarter: 2005Q2

REPORT INFORMATION
  Report Type: 
  Country: None (occurrence: None)
  Receive Date: 20050426
  Receipt Date: 20050412
  Transmission Date: 20051028
  Serious: Yes (Other)
  Sender: FDA-Public Use
  Company Number: 2005058774

PATIENT
  Sex: Male
  Weight: 74.8435 kg

DRUGS (1)
  1. CELEBREX [Suspect]
     Indication: INJURY
     Dosage: 200 MG (200 MG, 1 IN 1 D) ORAL
     Route: 048

REACTIONS (3)
  - BODY HEIGHT DECREASED [None]
  - HIP ARTHROPLASTY [None]
  - INFLAMMATION [None]
